FAERS Safety Report 4826480-5 (Version None)
Quarter: 2005Q4

REPORT INFORMATION
  Report Type: 
  Country: None (occurrence: None)
  Receive Date: 20051014
  Receipt Date: 20050621
  Transmission Date: 20060501
  Serious: Yes (Other)
  Sender: FDA-Public Use
  Company Number: 2005091316

PATIENT
  Age: 78 Year
  Sex: Female
  Weight: 54.4316 kg

DRUGS (6)
  1. MACUGEN [Suspect]
     Indication: MACULAR DEGENERATION
     Dosage: INTRAVITREOUS
     Dates: start: 20050301
  2. VITAMINS [Concomitant]
  3. OCUVITE (ASCORIBC ACID, RETINOL, TOCOPHEROL) [Concomitant]
  4. ASPIRIN [Concomitant]
  5. SUDAFED (PSEUDOEPHEDRINE) [Concomitant]
  6. BENADRYL [Concomitant]

REACTIONS (2)
  - ARTHRITIS [None]
  - MUSCLE SPASMS [None]
